FAERS Safety Report 5647412-6 (Version None)
Quarter: 2008Q1

REPORT INFORMATION
  Report Type: 
  Country: None (occurrence: None)
  Receive Date: 20080303
  Receipt Date: 20080219
  Transmission Date: 20080703
  Serious: Yes (Hospitalization)
  Sender: FDA-Public Use
  Company Number: JP-ASTRAZENECA-2008SE00825

PATIENT
  Age: 698 Month
  Sex: Male

DRUGS (4)
  1. BLOPRESS [Suspect]
     Indication: HYPERTENSION
     Route: 048
     Dates: start: 20080107, end: 20080201
  2. DEPAS [Suspect]
     Indication: ANXIETY DISORDER
     Route: 048
  3. DEPAS [Suspect]
     Route: 048
     Dates: end: 20070901
  4. DEPAS [Suspect]
     Route: 048
     Dates: start: 20070901, end: 20080204

REACTIONS (1)
  - RHABDOMYOLYSIS [None]
